FAERS Safety Report 8879113 (Version 1)
Quarter: 2012Q4

REPORT INFORMATION
  Report Type: Spontaneous
  Country: US (occurrence: None)
  Receive Date: 20121031
  Receipt Date: 20121031
  Transmission Date: 20130627
  Serious: No
  Sender: FDA-Public Use
  Company Number: None

PATIENT
  Age: 89 Year
  Sex: Male
  Weight: 124.7 kg

DRUGS (1)
  1. INSULIN [Suspect]
     Indication: IDDM
     Dosage: 18 UNITS AM SQ
     Route: 058
     Dates: start: 20090618, end: 20121025

REACTIONS (2)
  - Mental status changes [None]
  - Hypoglycaemia [None]
